APPROVED DRUG PRODUCT: FAMOTIDINE
Active Ingredient: FAMOTIDINE
Strength: 20MG/5ML (4MG/ML)
Dosage Form/Route: SOLUTION;INTRAVENOUS
Application: N219935 | Product #001
Applicant: SAGENT PHARMACEUTICALS
Approved: Jul 16, 2025 | RLD: Yes | RS: Yes | Type: RX